FAERS Safety Report 8391342-6 (Version None)
Quarter: 2012Q2

REPORT INFORMATION
  Report Type: 
  Country: None (occurrence: None)
  Receive Date: 20120529
  Receipt Date: 20120518
  Transmission Date: 20120825
  Serious: Yes (Hospitalization, Other)
  Sender: FDA-Public Use
  Company Number: US-JNJFOC-20120314693

PATIENT
  Sex: Female

DRUGS (26)
  1. ADVAIR DISKUS 100/50 [Suspect]
     Indication: EMPHYSEMA
     Route: 065
  2. PREDNISONE TAB [Suspect]
     Indication: EMPHYSEMA
     Route: 048
  3. ALBUTEROL [Concomitant]
     Indication: CHRONIC OBSTRUCTIVE PULMONARY DISEASE
     Route: 065
  4. LEVAQUIN [Suspect]
     Indication: UPPER RESPIRATORY TRACT INFECTION
     Route: 048
     Dates: start: 20100301
  5. VITAMINS NOS [Concomitant]
     Indication: PRODUCT USED FOR UNKNOWN INDICATION
     Route: 065
  6. POTASSIUM CHLORIDE [Concomitant]
     Indication: NUTRITIONAL SUPPORT
     Route: 065
  7. CITALOPRAM [Concomitant]
     Indication: ANXIETY
     Route: 065
  8. ALBUTEROL [Concomitant]
     Indication: EMPHYSEMA
     Route: 065
  9. AZITHROMYCIN [Concomitant]
     Indication: ANTIBIOTIC THERAPY
     Route: 065
  10. NYSTATIN [Concomitant]
     Indication: ANTIBIOTIC THERAPY
     Route: 065
  11. FUROSEMIDE [Concomitant]
     Indication: CARDIAC FAILURE CONGESTIVE
     Route: 065
  12. METHYLPREDNISOLONE [Suspect]
     Indication: CHRONIC OBSTRUCTIVE PULMONARY DISEASE
     Route: 065
  13. PROPOXYPHENE HYDROCHLORIDE [Concomitant]
     Indication: PAIN
     Route: 065
  14. TUSSIONEX [Concomitant]
     Indication: COUGH
     Route: 065
  15. PRAMIPEXOLE DIHYDROCHLORIDE [Concomitant]
     Indication: RESTLESS LEGS SYNDROME
     Route: 065
  16. ZYRTEC [Concomitant]
     Indication: HYPERSENSITIVITY
     Route: 065
  17. METHYLPREDNISOLONE [Suspect]
     Indication: EMPHYSEMA
     Route: 065
  18. PREDNISONE TAB [Suspect]
     Indication: CHRONIC OBSTRUCTIVE PULMONARY DISEASE
     Route: 048
  19. HYDROCODONE BITARTRATE [Concomitant]
     Indication: PAIN
     Route: 065
  20. TIZANIDINE [Concomitant]
     Indication: PAIN
     Route: 065
  21. ADVAIR DISKUS 100/50 [Suspect]
     Indication: CHRONIC OBSTRUCTIVE PULMONARY DISEASE
     Route: 065
  22. VITAMIN D [Concomitant]
     Indication: NUTRITIONAL SUPPORT
     Route: 065
  23. DOXYCYCLINE [Concomitant]
     Indication: ANTIBIOTIC THERAPY
     Route: 065
  24. LEXAPRO [Concomitant]
     Indication: DEPRESSION
     Route: 065
  25. SINGULAIR [Concomitant]
     Indication: HYPERSENSITIVITY
     Route: 065
  26. PRILOSEC [Concomitant]
     Indication: GASTROOESOPHAGEAL REFLUX DISEASE
     Route: 065

REACTIONS (2)
  - TENDON RUPTURE [None]
  - MENISCUS LESION [None]
